FAERS Safety Report 8933338 (Version 1)
Quarter: 2012Q4

REPORT INFORMATION
  Report Type: Report from Study
  Country: JP (occurrence: JP)
  Receive Date: 20121128
  Receipt Date: 20121128
  Transmission Date: 20130627
  Serious: Yes (Other)
  Sender: FDA-Public Use
  Company Number: JP-009507513-2011SP043085

PATIENT
  Age: 72 Year
  Sex: Male
  Weight: 62.4 kg

DRUGS (6)
  1. RIBAVIRIN [Suspect]
     Indication: HEPATITIS C
     Dosage: 400 mg, QD
     Route: 048
     Dates: start: 20101206, end: 20110520
  2. FERON [Suspect]
     Indication: HEPATITIS C
     Dosage: 3 million IU, BID
     Route: 041
     Dates: start: 20101206, end: 20101219
  3. FERON [Suspect]
     Dosage: 6 million IU, QD
     Route: 042
     Dates: start: 20101220, end: 20110103
  4. FERON [Suspect]
     Dosage: 6 million IU, TIW
     Route: 042
     Dates: start: 20110104, end: 20110520
  5. GASTER [Concomitant]
     Indication: PROPHYLAXIS AGAINST GASTROINTESTINAL ULCER
     Dosage: 40 mg, QD
     Route: 048
     Dates: start: 20101206
  6. URSO [Concomitant]
     Indication: HEPATITIS C
     Dosage: 600 mg, QD
     Route: 048
     Dates: start: 20110502

REACTIONS (5)
  - Neutrophil count decreased [Recovered/Resolved]
  - Decreased appetite [Not Recovered/Not Resolved]
  - Proteinuria [Recovered/Resolved]
  - Pyrexia [Recovered/Resolved]
  - Depression [Recovered/Resolved]
